FAERS Safety Report 23687212 (Version 1)
Quarter: 2024Q1

REPORT INFORMATION
  Report Type: Spontaneous
  Country: FR (occurrence: FR)
  Receive Date: 20240329
  Receipt Date: 20240329
  Transmission Date: 20240409
  Serious: Yes (Death)
  Sender: FDA-Public Use
  Company Number: None

PATIENT
  Age: 57 Year
  Sex: Female
  Weight: 84 kg

DRUGS (3)
  1. KETOPROFEN [Suspect]
     Active Substance: KETOPROFEN
     Indication: Bone pain
     Dosage: UNK
     Route: 048
     Dates: start: 202402, end: 20240301
  2. BEVACIZUMAB [Suspect]
     Active Substance: BEVACIZUMAB
     Indication: Cervix carcinoma stage IV
     Dosage: 15 MILLIGRAM/KILOGRAM, Q21D
     Route: 042
     Dates: start: 20230201, end: 20240216
  3. METHYLPREDNISOLONE [Suspect]
     Active Substance: METHYLPREDNISOLONE
     Indication: Immune-mediated enterocolitis
     Dosage: 60 MILLIGRAM
     Route: 048
     Dates: start: 202312

REACTIONS (2)
  - Septic shock [Fatal]
  - Arthritis [Fatal]

NARRATIVE: CASE EVENT DATE: 20240201
